FAERS Safety Report 13988044 (Version 1)
Quarter: 2017Q3

REPORT INFORMATION
  Report Type: Spontaneous
  Country: BE (occurrence: BE)
  Receive Date: 20170919
  Receipt Date: 20170919
  Transmission Date: 20171128
  Serious: Yes (Other)
  Sender: FDA-Public Use
  Company Number: PHHY2017BE119095

PATIENT

DRUGS (4)
  1. ARAVA [Concomitant]
     Active Substance: LEFLUNOMIDE
     Indication: PSORIATIC ARTHROPATHY
     Dosage: 20 MG, QD
     Route: 065
     Dates: start: 20170816
  2. COSENTYX [Suspect]
     Active Substance: SECUKINUMAB
     Indication: PSORIATIC ARTHROPATHY
     Dosage: 150 MG, QW (LOADING DOSE DURING 5 WEEKS)
     Route: 058
     Dates: start: 20170314, end: 201704
  3. COSENTYX [Suspect]
     Active Substance: SECUKINUMAB
     Dosage: 150 MG, QMO
     Route: 058
     Dates: start: 201704
  4. COSENTYX [Suspect]
     Active Substance: SECUKINUMAB
     Dosage: 150 MG, QMO
     Route: 058
     Dates: start: 201708, end: 201708

REACTIONS (13)
  - Gastrooesophageal reflux disease [Unknown]
  - Arthralgia [Not Recovered/Not Resolved]
  - Candida infection [Unknown]
  - Musculoskeletal stiffness [Not Recovered/Not Resolved]
  - Weight decreased [Unknown]
  - Chronic gastritis [Unknown]
  - Tooth abscess [Unknown]
  - Oral herpes [Unknown]
  - Nausea [Unknown]
  - Diverticulum [Unknown]
  - Diarrhoea [Unknown]
  - Cystitis [Unknown]
  - Liver function test abnormal [Unknown]

NARRATIVE: CASE EVENT DATE: 20170516
